FAERS Safety Report 14754568 (Version 1)
Quarter: 2018Q2

REPORT INFORMATION
  Report Type: Spontaneous
  Country: US (occurrence: US)
  Receive Date: 20180413
  Receipt Date: 20180413
  Transmission Date: 20180711
  Serious: No
  Sender: FDA-Public Use
  Company Number: US-TEVA-2018-US-878976

PATIENT
  Sex: Female

DRUGS (1)
  1. PORTIA [Suspect]
     Active Substance: ETHINYL ESTRADIOL\LEVONORGESTREL
     Indication: CONTRACEPTION
     Dosage: 0.15 MG/0.03 MG

REACTIONS (4)
  - Urticaria [Unknown]
  - Hypersensitivity [Unknown]
  - Product substitution issue [Unknown]
  - Pruritus [Unknown]
